FAERS Safety Report 8154251-3 (Version None)
Quarter: 2012Q1

REPORT INFORMATION
  Report Type: 
  Country: None (occurrence: None)
  Receive Date: 20120217
  Receipt Date: 20120217
  Transmission Date: 20120608
  Serious: Yes (Death)
  Sender: FDA-Public Use
  Company Number: None

PATIENT
  Age: 35 Year
  Sex: Female
  Weight: 61.2356 kg

DRUGS (1)
  1. V2 CIGS NTR / NA V2 CIGS / VMR PRODUCTS [Suspect]
     Indication: SMOKING CESSATION THERAPY
     Dosage: 0 MG TO 18 NG DAILY ORAL
     Route: 048

REACTIONS (16)
  - MIGRAINE [None]
  - URTICARIA [None]
  - DIARRHOEA [None]
  - PRODUCT LABEL ISSUE [None]
  - VOMITING [None]
  - ABDOMINAL DISCOMFORT [None]
  - HEADACHE [None]
  - PRURITUS [None]
  - DYSPNOEA [None]
  - PRODUCT QUALITY ISSUE [None]
  - PRODUCT FORMULATION ISSUE [None]
  - ASTHMA [None]
  - HYPERSENSITIVITY [None]
  - MOTION SICKNESS [None]
  - PALPITATIONS [None]
  - LEGAL PROBLEM [None]
